APPROVED DRUG PRODUCT: ALTOPREV
Active Ingredient: LOVASTATIN
Strength: 60MG
Dosage Form/Route: TABLET, EXTENDED RELEASE;ORAL
Application: N021316 | Product #004
Applicant: COVIS PHARMA GMBH
Approved: Jun 26, 2002 | RLD: Yes | RS: No | Type: DISCN